FAERS Safety Report 19994821 (Version 2)
Quarter: 2021Q4

REPORT INFORMATION
  Report Type: Spontaneous
  Country: DE (occurrence: DE)
  Receive Date: 20211026
  Receipt Date: 20211101
  Transmission Date: 20220303
  Serious: Yes (Hospitalization, Other)
  Sender: FDA-Public Use
  Company Number: None

PATIENT
  Age: 100 Year
  Sex: Female

DRUGS (2)
  1. CAPTOPRIL [Suspect]
     Active Substance: CAPTOPRIL
     Indication: Hypertension
     Dosage: 25 MILLIGRAM, QD
     Route: 048
  2. METOPROLOL [Suspect]
     Active Substance: METOPROLOL
     Indication: Product used for unknown indication
     Dosage: 100 MILLIGRAM, QD
     Route: 048

REACTIONS (5)
  - Paraparesis [Recovered/Resolved with Sequelae]
  - Back pain [Recovered/Resolved with Sequelae]
  - Nerve injury [Recovered/Resolved with Sequelae]
  - Gait disturbance [Recovered/Resolved with Sequelae]
  - Paraesthesia [Recovered/Resolved with Sequelae]

NARRATIVE: CASE EVENT DATE: 20210605
